FAERS Safety Report 9337422 (Version 1)
Quarter: 2013Q2

REPORT INFORMATION
  Report Type: Other
  Country: GB (occurrence: GB)
  Receive Date: 20130607
  Receipt Date: 20130607
  Transmission Date: 20140414
  Serious: Yes (Disabling)
  Sender: FDA-Public Use
  Company Number: GB-WATSON-2013-09640

PATIENT
  Age: 79 Year
  Sex: 0

DRUGS (6)
  1. CITALOPRAM (UNKNOWN) [Suspect]
     Indication: DEPRESSION
     Dosage: 30 MG, UNKNOWN
     Route: 048
     Dates: start: 201301, end: 20130227
  2. ZOPICLONE [Concomitant]
     Indication: INSOMNIA
     Dosage: 3.75 MG, UNKNOWN, NOT STOPPED
     Route: 048
     Dates: start: 201301
  3. RAMIPRIL [Concomitant]
     Indication: HYPERTENSION
     Dosage: 5 MG, UNKNOWN, NOT STOPPED
     Route: 048
     Dates: start: 201212
  4. OMEPRAZOLE [Concomitant]
     Indication: PRODUCT USED FOR UNKNOWN INDICATION
     Dosage: 20 MG, UNKNOWN, NOT STOPPED
     Route: 048
     Dates: start: 201301
  5. BISOPROLOL [Concomitant]
     Indication: HYPERTENSION
     Dosage: 2.5 MG, UNKNOWN, START DATE: UNKNOWN. NOT STOPPED
     Route: 048
  6. SIMVASTATIN [Concomitant]
     Indication: PRODUCT USED FOR UNKNOWN INDICATION
     Dosage: 10 MG, UNKNOWN, NOT STOPPED
     Route: 048
     Dates: start: 201106

REACTIONS (3)
  - Ataxia [Recovered/Resolved]
  - Balance disorder [Recovered/Resolved]
  - Movement disorder [Recovered/Resolved]
